FAERS Safety Report 8397974-3 (Version None)
Quarter: 2012Q1

REPORT INFORMATION
  Report Type: 
  Country: None (occurrence: None)
  Receive Date: 20120323
  Receipt Date: 20110208
  Transmission Date: 20120608
  Serious: Yes (Hospitalization)
  Sender: FDA-Public Use
  Company Number: 163-21880-11011410

PATIENT
  Age: 64 Year
  Sex: Female
  Weight: 62.14 kg

DRUGS (9)
  1. ATIVAN [Concomitant]
  2. DECADRON [Concomitant]
  3. CARDIZEM [Concomitant]
  4. DIGOXIN [Concomitant]
  5. VITAMIN D [Concomitant]
  6. VITAMIN B12 [Concomitant]
  7. ASPIRIN [Concomitant]
  8. POTASSIUM CHLORIDE [Concomitant]
  9. REVLIMID [Suspect]
     Indication: MULTIPLE MYELOMA
     Dosage: 15 MG, DAILY X 21 DAYS, PO ; 10 MG, PO
     Route: 048
     Dates: start: 20100824

REACTIONS (1)
  - DEEP VEIN THROMBOSIS [None]
